FAERS Safety Report 4439770-5 (Version None)
Quarter: 2004Q3

REPORT INFORMATION
  Report Type: 
  Country: None (occurrence: None)
  Receive Date: 20040902
  Receipt Date: 20040823
  Transmission Date: 20050211
  Serious: Yes (Other)
  Sender: FDA-Public Use
  Company Number: PHBS2004CH11031

PATIENT
  Age: 36 Year
  Sex: Male

DRUGS (8)
  1. SINTROM [Suspect]
     Indication: PULMONARY EMBOLISM
     Dosage: 5 TO 6 MG/DAY
     Route: 048
     Dates: start: 20040701
  2. TEGRETOL [Suspect]
     Indication: CONVULSION
     Dosage: 1200 MG, QD
     Route: 048
  3. TEMODAL [Suspect]
     Indication: OLIGODENDROGLIOMA
     Dosage: 400 MG, QD
     Route: 048
     Dates: start: 20040628, end: 20040702
  4. CELEBREX [Suspect]
     Indication: PAIN
     Dosage: 100 MG/DAY
     Route: 048
     Dates: start: 20040629, end: 20040705
  5. NEXIUM [Suspect]
     Indication: PROPHYLAXIS AGAINST GASTROINTESTINAL ULCER
     Dosage: 40 MG/DAY
     Route: 048
     Dates: end: 20040706
  6. FRAXIPARINE [Suspect]
     Indication: THROMBOSIS PROPHYLAXIS
     Dosage: .16 ML, QD
     Route: 058
  7. TRAMAL [Concomitant]
     Indication: PAIN
     Dates: start: 20040621, end: 20040701
  8. CALCIUM WITH VITAMIN D [Concomitant]
     Dosage: UNK, UNK
     Dates: end: 20040706

REACTIONS (7)
  - ALANINE AMINOTRANSFERASE INCREASED [None]
  - ASPARTATE AMINOTRANSFERASE INCREASED [None]
  - BLOOD LACTATE DEHYDROGENASE INCREASED [None]
  - DRUG INTERACTION [None]
  - GAMMA-GLUTAMYLTRANSFERASE INCREASED [None]
  - HEPATOCELLULAR DAMAGE [None]
  - INTERNATIONAL NORMALISED RATIO DECREASED [None]
